FAERS Safety Report 8018794-5 (Version None)
Quarter: 2012Q1

REPORT INFORMATION
  Report Type: 
  Country: None (occurrence: None)
  Receive Date: 20120103
  Receipt Date: 20111220
  Transmission Date: 20120608
  Serious: Yes (Hospitalization)
  Sender: FDA-Public Use
  Company Number: JP-UCBSA-048164

PATIENT
  Age: 74 Year
  Sex: Male

DRUGS (8)
  1. KEPPRA [Suspect]
     Indication: TEMPORAL LOBE EPILEPSY
     Route: 048
     Dates: start: 20111108, end: 20111116
  2. KEPPRA [Suspect]
     Indication: EPILEPSY
     Route: 048
     Dates: start: 20111108, end: 20111116
  3. CLONAZEPAM [Concomitant]
     Dosage: DAILY DOSE:0.5 MG
     Route: 048
     Dates: start: 20111108
  4. KEPPRA [Suspect]
     Indication: FRONTAL LOBE EPILEPSY
     Route: 048
     Dates: start: 20111108, end: 20111116
  5. KEPPRA [Suspect]
     Indication: DEMENTIA
     Route: 048
     Dates: start: 20111108, end: 20111116
  6. TOPIRAMATE [Concomitant]
     Dosage: TOTAL DAILY DOSE: 150 MG/DAY
  7. SEROQUEL [Concomitant]
     Dosage: DAILY DOSE: 25 MG
     Route: 048
     Dates: start: 20111108
  8. PHENYTOIN SODIUM CAP [Concomitant]
     Dosage: DAILY DOSE:7.5 MG
     Route: 048
     Dates: start: 20111108

REACTIONS (1)
  - DRUG ERUPTION [None]
